FAERS Safety Report 22716513 (Version 3)
Quarter: 2023Q4

REPORT INFORMATION
  Report Type: Spontaneous
  Country: US (occurrence: US)
  Receive Date: 20230718
  Receipt Date: 20231026
  Transmission Date: 20240109
  Serious: Yes (Other)
  Sender: FDA-Public Use
  Company Number: US-PFIZER INC-202300248653

PATIENT
  Age: 11 Year
  Sex: Male

DRUGS (2)
  1. OXBRYTA [Suspect]
     Active Substance: VOXELOTOR
     Dosage: 3 TABLETS FOR ORAL SUSPENSION ONCE DAILY
     Route: 048
  2. OXBRYTA [Suspect]
     Active Substance: VOXELOTOR
     Dosage: 300 MG, 1X/DAY (1 TABLET FOR ORAL SUSPENSION ONCE DAILY)
     Route: 048
     Dates: end: 2023

REACTIONS (1)
  - Transfusion [Unknown]
